FAERS Safety Report 10959644 (Version 2)
Quarter: 2015Q2

REPORT INFORMATION
  Report Type: Spontaneous
  Country: US (occurrence: US)
  Receive Date: 20150327
  Receipt Date: 20150524
  Transmission Date: 20150821
  Serious: No
  Sender: FDA-Public Use
  Company Number: US-JNJFOC-20120518253

PATIENT
  Age: 34 Year
  Sex: Female
  Weight: 53.52 kg

DRUGS (2)
  1. FENTANYL. [Suspect]
     Active Substance: FENTANYL
     Indication: MULTIPLE SCLEROSIS
     Route: 062
     Dates: start: 201109
  2. HYDROCODEIN [Concomitant]
     Indication: BREAKTHROUGH PAIN
     Route: 048
     Dates: start: 201102

REACTIONS (3)
  - Product packaging issue [Unknown]
  - Pain [Not Recovered/Not Resolved]
  - Drug tolerance [Not Recovered/Not Resolved]

NARRATIVE: CASE EVENT DATE: 201204
